FAERS Safety Report 4760276-8 (Version None)
Quarter: 2005Q3

REPORT INFORMATION
  Report Type: 
  Country: None (occurrence: None)
  Receive Date: 20050902
  Receipt Date: 20050628
  Transmission Date: 20060218
  Serious: Yes (Life-Threatening)
  Sender: FDA-Public Use
  Company Number: DE-ROCHE-411671

PATIENT
  Age: 41 Year
  Sex: Male
  Weight: 71 kg

DRUGS (1)
  1. PEG-INTERFERON ALFA 2A (RO 25-8310) [Suspect]
     Route: 065
     Dates: start: 20050422, end: 20050527

REACTIONS (20)
  - ANAEMIA [None]
  - AORTIC VALVE SCLEROSIS [None]
  - CACHEXIA [None]
  - CARDIAC FAILURE [None]
  - CONDITION AGGRAVATED [None]
  - COOMBS DIRECT TEST POSITIVE [None]
  - DILATATION ATRIAL [None]
  - GENERAL PHYSICAL HEALTH DETERIORATION [None]
  - HYPERTENSIVE HEART DISEASE [None]
  - INFECTION [None]
  - KIDNEY TRANSPLANT REJECTION [None]
  - MYCOPLASMA SEROLOGY POSITIVE [None]
  - PNEUMONIA PRIMARY ATYPICAL [None]
  - PULMONARY OEDEMA [None]
  - RENAL ARTERITIS [None]
  - RENAL HAEMORRHAGE [None]
  - RENAL INFARCT [None]
  - RENAL NECROSIS [None]
  - VASODILATATION [None]
  - VENTRICULAR HYPERTROPHY [None]
